FAERS Safety Report 18942752 (Version 1)
Quarter: 2021Q1

REPORT INFORMATION
  Report Type: Spontaneous
  Country: US (occurrence: US)
  Receive Date: 20210225
  Receipt Date: 20210225
  Transmission Date: 20210420
  Serious: No
  Sender: FDA-Public Use
  Company Number: US-AMGEN-USASP2021029576

PATIENT
  Sex: Female

DRUGS (3)
  1. MVASI [Suspect]
     Active Substance: BEVACIZUMAB-AWWB
     Dosage: 450 MILLIGRAM
     Route: 065
     Dates: start: 20210215
  2. MVASI [Suspect]
     Active Substance: BEVACIZUMAB-AWWB
     Indication: COLON CANCER
     Dosage: UNK
     Route: 065
     Dates: start: 20201018
  3. MVASI [Suspect]
     Active Substance: BEVACIZUMAB-AWWB
     Dosage: 450 MILLIGRAM
     Route: 065
     Dates: start: 20201228

REACTIONS (1)
  - Off label use [Unknown]
